FAERS Safety Report 5233815-0 (Version None)
Quarter: 2007Q1

REPORT INFORMATION
  Report Type: 
  Country: None (occurrence: None)
  Receive Date: 20061208
  Receipt Date: 20060220
  Transmission Date: 20070707
  Serious: Yes (Other)
  Sender: FDA-Public Use
  Company Number: 2006UW02818

PATIENT
  Sex: Female
  Weight: 74.389 kg

DRUGS (5)
  1. CRESTOR [Suspect]
     Indication: MYOCARDIAL INFARCTION
     Dosage: 10 MG PO
     Route: 048
     Dates: start: 20050201
  2. CRESTOR [Suspect]
     Indication: MYOCARDIAL INFARCTION
     Dosage: 10 MG PO
     Route: 048
     Dates: start: 20050801
  3. DIOVAN [Concomitant]
  4. COREG [Concomitant]
  5. FUROSEMIDE [Concomitant]

REACTIONS (2)
  - BLOOD TRIGLYCERIDES INCREASED [None]
  - WEIGHT INCREASED [None]
